FAERS Safety Report 5751592-1 (Version None)
Quarter: 2008Q2

REPORT INFORMATION
  Report Type: 
  Country: None (occurrence: None)
  Receive Date: 20080528
  Receipt Date: 20080519
  Transmission Date: 20081010
  Serious: Yes (Life-Threatening, Other)
  Sender: FDA-Public Use
  Company Number: PHHY2008JP02003

PATIENT
  Age: 29 Year
  Sex: Male
  Weight: 80 kg

DRUGS (27)
  1. VOLTAREN [Suspect]
     Indication: ANTIPYRESIS
     Dosage: 50 MG/ DAY
     Route: 054
     Dates: start: 20070217, end: 20070220
  2. SOLITA-T NO.3 [Concomitant]
     Indication: DEHYDRATION
     Dosage: 500 ML
     Dates: start: 20070212, end: 20070212
  3. VITANEURIN [Concomitant]
     Indication: DEHYDRATION
     Dosage: 1IU
     Route: 042
     Dates: start: 20070212, end: 20070212
  4. CALONAL [Concomitant]
     Indication: ANTIPYRESIS
     Dosage: 1200 MG
     Route: 048
     Dates: start: 20070213
  5. KAKKON-TO [Concomitant]
     Indication: NASOPHARYNGITIS
     Dosage: 7.5 G
     Route: 048
     Dates: start: 20070215, end: 20070216
  6. LOXONIN [Concomitant]
     Indication: NASOPHARYNGITIS
     Dosage: 180 MG
     Route: 048
     Dates: start: 20070215, end: 20070216
  7. MUCOSOLVAN [Concomitant]
     Indication: COUGH
     Dosage: 45 MG
     Route: 048
     Dates: start: 20070217, end: 20070220
  8. BISOLVON [Concomitant]
     Indication: COUGH
     Dosage: 12 MG
     Route: 048
     Dates: start: 20070217, end: 20070220
  9. MEDICON [Concomitant]
     Indication: COUGH
     Dosage: 45 MG
     Route: 048
     Dates: start: 20070219, end: 20070220
  10. ASVERIN [Concomitant]
     Indication: COUGH
     Dosage: 60 MG
     Route: 048
     Dates: start: 20070219, end: 20070220
  11. GATIFLOXACIN [Concomitant]
  12. NEOPHYLLIN [Concomitant]
     Dosage: 250 MG
  13. STRONG NEO-MINOPHAGEN C [Concomitant]
     Dosage: 20 ML
  14. MINOMYCIN [Suspect]
     Indication: PNEUMONIA MYCOPLASMAL
     Dosage: 200 MG
     Route: 042
     Dates: start: 20070217, end: 20070220
  15. PL [Concomitant]
     Indication: NASOPHARYNGITIS
     Dosage: 3 G
     Route: 048
     Dates: start: 20070212, end: 20070214
  16. MEIACT [Concomitant]
     Indication: NASOPHARYNGITIS
     Dosage: 300 MG
     Route: 048
     Dates: start: 20070212, end: 20070214
  17. SELBEX [Concomitant]
     Indication: NASOPHARYNGITIS
     Dosage: 150 MG
     Route: 048
     Dates: start: 20070212, end: 20070214
  18. OXYGEN [Concomitant]
  19. BOSMIN [Concomitant]
     Dosage: 0.5 ML
     Route: 058
  20. SOLU-MEDROL [Concomitant]
     Dosage: 40 MG
     Dates: start: 20070222
  21. SOLU-MEDROL [Concomitant]
     Dosage: 500 MG/ DAY
     Dates: start: 20070224, end: 20070225
  22. SAXIZON [Concomitant]
     Dosage: 400 MG/ DAY
     Dates: start: 20070222
  23. SAXIZON [Concomitant]
     Dosage: 400 MG/ DAY
     Dates: start: 20070224, end: 20070225
  24. IMMUNE GLOBULIN INTRAVENOUS (HUMAN) [Concomitant]
     Dosage: 20 G / DAY
     Dates: start: 20070222
  25. IMMUNE GLOBULIN INTRAVENOUS (HUMAN) [Concomitant]
     Dosage: 20 G/ DAY
     Dates: start: 20070224, end: 20070225
  26. IMMUNE GLOBULIN INTRAVENOUS (HUMAN) [Concomitant]
     Dates: end: 20070226
  27. HACHIAZULE [Concomitant]

REACTIONS (25)
  - ABDOMINAL PAIN UPPER [None]
  - ALANINE AMINOTRANSFERASE INCREASED [None]
  - ANAPHYLACTIC REACTION [None]
  - APHTHOUS STOMATITIS [None]
  - ASPARTATE AMINOTRANSFERASE INCREASED [None]
  - BLOOD LACTATE DEHYDROGENASE INCREASED [None]
  - BLOOD UREA INCREASED [None]
  - CHEILITIS [None]
  - CONJUNCTIVITIS [None]
  - DYSPHONIA [None]
  - DYSPNOEA [None]
  - ERYTHEMA MULTIFORME [None]
  - FACE OEDEMA [None]
  - GAMMA-GLUTAMYLTRANSFERASE INCREASED [None]
  - LACRIMATION INCREASED [None]
  - LARYNGEAL OEDEMA [None]
  - LYMPHOCYTE COUNT DECREASED [None]
  - NASAL CONGESTION [None]
  - NEUTROPHIL COUNT INCREASED [None]
  - OCULAR HYPERAEMIA [None]
  - PAIN [None]
  - PHARYNGEAL DISORDER [None]
  - RASH [None]
  - STEVENS-JOHNSON SYNDROME [None]
  - WHITE BLOOD CELL COUNT INCREASED [None]
